FAERS Safety Report 17982984 (Version 16)
Quarter: 2020Q4

REPORT INFORMATION
  Report Type: Spontaneous
  Country: US (occurrence: US)
  Receive Date: 20200706
  Receipt Date: 20201104
  Transmission Date: 20210113
  Serious: Yes (Hospitalization, Other)
  Sender: FDA-Public Use
  Company Number: US-PFIZER INC-2020223344

PATIENT
  Age: 70 Year
  Sex: Male

DRUGS (3)
  1. LYRICA [Suspect]
     Active Substance: PREGABALIN
     Indication: PHANTOM LIMB SYNDROME
     Dosage: 150 MG, AS NEEDED (TWICE DAILY, PRN (AS NEEDED))
     Route: 048
  2. LYRICA [Suspect]
     Active Substance: PREGABALIN
     Dosage: 300 MG, AS NEEDED (TWICE A DAY, PRN (AS NEEDED))
     Route: 048
  3. INSULIN [Concomitant]
     Active Substance: INSULIN NOS
     Dosage: UNK

REACTIONS (9)
  - Product prescribing error [Unknown]
  - Blood glucose fluctuation [Unknown]
  - Product use in unapproved indication [Unknown]
  - Peau d^orange [Unknown]
  - Drug effective for unapproved indication [Unknown]
  - Myocardial infarction [Unknown]
  - Cardiac failure congestive [Unknown]
  - Off label use [Unknown]
  - Pain [Unknown]
